FAERS Safety Report 5120164-4 (Version None)
Quarter: 2006Q3

REPORT INFORMATION
  Report Type: 
  Country: None (occurrence: None)
  Receive Date: 20060928
  Receipt Date: 20060922
  Transmission Date: 20061208
  Serious: Yes (Hospitalization, Other)
  Sender: FDA-Public Use
  Company Number: 2006SP000532

PATIENT
  Age: 74 Year
  Sex: Female
  Weight: 40 kg

DRUGS (2)
  1. CLARITIN [Suspect]
     Indication: TINEA INFECTION
     Dosage: PO
     Route: 048
     Dates: start: 20060101, end: 20060612
  2. ITRACONAZOLE [Suspect]
     Indication: TINEA INFECTION
     Dosage: PO
     Route: 048
     Dates: start: 20060101, end: 20060612

REACTIONS (5)
  - CHROMATURIA [None]
  - HEPATITIS ACUTE [None]
  - JAUNDICE [None]
  - LIVER DISORDER [None]
  - MALAISE [None]
